FAERS Safety Report 10916002 (Version 1)
Quarter: 2015Q1

REPORT INFORMATION
  Report Type: Spontaneous
  Country: TR (occurrence: TR)
  Receive Date: 20150316
  Receipt Date: 20150316
  Transmission Date: 20150721
  Serious: Yes (Hospitalization)
  Sender: FDA-Public Use
  Company Number: TR-TEVA-547613ISR

PATIENT
  Sex: Female
  Weight: 89 kg

DRUGS (2)
  1. PACLITAXEL. [Concomitant]
     Active Substance: PACLITAXEL
  2. CARBOPLATIN. [Suspect]
     Active Substance: CARBOPLATIN
     Dosage: 720 MILLIGRAM DAILY;
     Route: 042

REACTIONS (3)
  - Flushing [Unknown]
  - Pulse abnormal [Unknown]
  - Hypotension [Unknown]
